FAERS Safety Report 25593141 (Version 1)
Quarter: 2025Q3

REPORT INFORMATION
  Report Type: Report from Study
  Country: US (occurrence: US)
  Receive Date: 20250722
  Receipt Date: 20250722
  Transmission Date: 20251020
  Serious: Yes (Other)
  Sender: ALEXION PHARMACEUTICALS
  Company Number: US-AstraZeneca-CH-00912763A

PATIENT

DRUGS (1)
  1. ULTOMIRIS [Suspect]
     Active Substance: RAVULIZUMAB-CWVZ
     Route: 065

REACTIONS (7)
  - Dyspnoea [Unknown]
  - Eye disorder [Not Recovered/Not Resolved]
  - Tongue disorder [Not Recovered/Not Resolved]
  - Dysphonia [Unknown]
  - Diarrhoea [Unknown]
  - Constipation [Not Recovered/Not Resolved]
  - Crohn^s disease [Unknown]
